FAERS Safety Report 13274589 (Version 1)
Quarter: 2017Q1

REPORT INFORMATION
  Report Type: Spontaneous
  Country: US (occurrence: US)
  Receive Date: 20170227
  Receipt Date: 20170227
  Transmission Date: 20170428
  Serious: Yes (Other)
  Sender: FDA-Public Use
  Company Number: US-SHIRE-US201703524

PATIENT

DRUGS (1)
  1. VPRIV [Suspect]
     Active Substance: VELAGLUCERASE ALFA
     Indication: GAUCHER^S DISEASE
     Dosage: 60 UNITS/KG, 1X/2WKS (EVERY OTHER WEEK)
     Route: 041

REACTIONS (2)
  - Neuropathy peripheral [Unknown]
  - Blood bilirubin increased [Unknown]
